FAERS Safety Report 24721509 (Version 2)
Quarter: 2025Q2

REPORT INFORMATION
  Report Type: Report from Study
  Country: FR (occurrence: FR)
  Receive Date: 20241211
  Receipt Date: 20250620
  Transmission Date: 20250717
  Serious: Yes (Death, Other)
  Sender: TAKEDA
  Company Number: FR-TAKEDA-2024TUS122702

PATIENT
  Sex: Male

DRUGS (2)
  1. MARIBAVIR [Suspect]
     Active Substance: MARIBAVIR
     Indication: Cytomegalovirus infection
     Dosage: 400 MILLIGRAM, BID
     Dates: start: 20240604
  2. MARIBAVIR [Suspect]
     Active Substance: MARIBAVIR

REACTIONS (4)
  - Cytopenia [Fatal]
  - Febrile bone marrow aplasia [Fatal]
  - Septic shock [Fatal]
  - Fungal infection [Fatal]
